FAERS Safety Report 13188101 (Version 2)
Quarter: 2020Q1

REPORT INFORMATION
  Report Type: Spontaneous
  Country: US (occurrence: US)
  Receive Date: 20170206
  Receipt Date: 20200327
  Transmission Date: 20200409
  Serious: Yes (Death, Hospitalization)
  Sender: FDA-Public Use
  Company Number: US-BAYER-2016-214675

PATIENT
  Age: 81 Year
  Sex: Female
  Weight: 62.65 kg

DRUGS (5)
  1. PLAVIX [Suspect]
     Active Substance: CLOPIDOGREL BISULFATE
     Indication: ARTERIAL STENT INSERTION
     Dosage: 75 MG, QD
     Route: 048
  2. XARELTO [Suspect]
     Active Substance: RIVAROXABAN
     Indication: THROMBOSIS PROPHYLAXIS
  3. BAYER LOW DOSE [Suspect]
     Active Substance: ASPIRIN
     Indication: ARTERIAL STENT INSERTION
     Dosage: 81 MG, QD
     Route: 048
  4. XARELTO [Suspect]
     Active Substance: RIVAROXABAN
     Indication: ARTERIAL STENT INSERTION
  5. XARELTO [Suspect]
     Active Substance: RIVAROXABAN
     Indication: THROMBOSIS PROPHYLAXIS
     Dosage: 15 MG, QD
     Route: 048
     Dates: start: 20130805, end: 201308

REACTIONS (1)
  - Gastrointestinal haemorrhage [Recovering/Resolving]

NARRATIVE: CASE EVENT DATE: 20130812
